FAERS Safety Report 6744111-4 (Version None)
Quarter: 2010Q2

REPORT INFORMATION
  Report Type: 
  Country: None (occurrence: None)
  Receive Date: 20100527
  Receipt Date: 20100521
  Transmission Date: 20101027
  Serious: Yes (Death)
  Sender: FDA-Public Use
  Company Number: A0861485A

PATIENT
  Age: 68 Year
  Sex: Female

DRUGS (1)
  1. ARIXTRA [Suspect]
     Dosage: 2.5MG TWICE PER DAY
     Route: 065
     Dates: start: 20100401

REACTIONS (2)
  - DEATH [None]
  - PULMONARY EMBOLISM [None]
